FAERS Safety Report 8136551-6 (Version None)
Quarter: 2012Q1

REPORT INFORMATION
  Report Type: 
  Country: None (occurrence: None)
  Receive Date: 20120214
  Receipt Date: 20120209
  Transmission Date: 20120608
  Serious: Yes (Hospitalization)
  Sender: FDA-Public Use
  Company Number: PHHY2012DE011663

PATIENT
  Sex: Female
  Weight: 63 kg

DRUGS (3)
  1. KINERET [Concomitant]
     Dosage: UNK
  2. ILARIS [Suspect]
     Indication: CHRONIC INFANTILE NEUROLOGICAL CUTANEOUS AND ARTICULAR SYNDROME
     Dosage: 300 MG, UNK
     Route: 058
     Dates: start: 20111101
  3. PREDNISONE TAB [Concomitant]
     Dosage: UNK

REACTIONS (2)
  - MENINGITIS [None]
  - INTRACRANIAL PRESSURE INCREASED [None]
